FAERS Safety Report 8391050-1 (Version None)
Quarter: 2012Q2

REPORT INFORMATION
  Report Type: 
  Country: None (occurrence: None)
  Receive Date: 20120529
  Receipt Date: 20120518
  Transmission Date: 20120825
  Serious: Yes (Other)
  Sender: FDA-Public Use
  Company Number: US-JNJFOC-20120517658

PATIENT
  Age: 38 Year
  Sex: Female
  Weight: 90.72 kg

DRUGS (9)
  1. LISTERINE WHITENING PLUS RESTORING FLUORIDE RINSE CLEAN MINT [Suspect]
     Indication: DENTAL CARE
     Dosage: CAP FULL ONCE
     Route: 048
  2. SINGULAIR [Concomitant]
     Indication: SINUS DISORDER
     Dosage: FOR YEARS
     Route: 065
  3. CLARITIN-D [Concomitant]
     Indication: MULTIPLE ALLERGIES
     Dosage: FOR YEARS
     Route: 065
  4. SINGULAIR [Concomitant]
     Indication: MULTIPLE ALLERGIES
     Dosage: FOR YEARS
     Route: 065
  5. ADVAIR DISKUS 100/50 [Concomitant]
     Indication: ASTHMA
     Dosage: 250/50, FOR YEARS
     Route: 065
  6. FLONASE [Concomitant]
     Indication: SINUS DISORDER
     Route: 065
  7. DEPO-PROVERA [Concomitant]
     Indication: CONTRACEPTION
     Dosage: FOR YEARS
     Route: 065
  8. CORTISONE ACETATE [Concomitant]
     Indication: UNEVALUABLE EVENT
     Dosage: FOR 6 MONTHS
     Route: 065
  9. NAPROXEN [Concomitant]
     Indication: INFLAMMATION
     Dosage: 6 MONTHS
     Route: 065

REACTIONS (1)
  - ASTHMA [None]
